FAERS Safety Report 9411658 (Version 1)
Quarter: 2013Q3

REPORT INFORMATION
  Report Type: Spontaneous
  Country: FR (occurrence: FR)
  Receive Date: 20130722
  Receipt Date: 20130722
  Transmission Date: 20140515
  Serious: Yes (Hospitalization)
  Sender: FDA-Public Use
  Company Number: FR-ROCHE-1251041

PATIENT
  Age: 74 Year
  Sex: Male

DRUGS (5)
  1. VALIUM [Suspect]
     Indication: PRODUCT USED FOR UNKNOWN INDICATION
     Dosage: 10 MG/2 ML
     Route: 042
     Dates: start: 20130504, end: 20130523
  2. CALCIPARINE [Suspect]
     Indication: CEREBROVASCULAR ACCIDENT
     Dosage: 12. 500 UI/ 0.5 ML
     Route: 058
     Dates: start: 20130503, end: 20130529
  3. DECAN (FRANCE) [Suspect]
     Indication: PRODUCT USED FOR UNKNOWN INDICATION
     Route: 041
     Dates: start: 20130507, end: 20130529
  4. ORGARAN [Concomitant]
     Route: 040
  5. ORGARAN [Concomitant]
     Route: 058

REACTIONS (1)
  - Thrombocytopenia [Recovered/Resolved]
